FAERS Safety Report 18600241 (Version 2)
Quarter: 2021Q2

REPORT INFORMATION
  Report Type: Spontaneous
  Country: US (occurrence: US)
  Receive Date: 20201210
  Receipt Date: 20210430
  Transmission Date: 20210717
  Serious: Yes (Other)
  Sender: FDA-Public Use
  Company Number: US-PFIZER INC-2020483925

PATIENT
  Age: 75 Year
  Sex: Female

DRUGS (1)
  1. IBRANCE [Suspect]
     Active Substance: PALBOCICLIB
     Indication: BREAST CANCER FEMALE
     Dosage: 75 MG

REACTIONS (7)
  - Anaemia [Unknown]
  - Malaise [Unknown]
  - Immune thrombocytopenia [Unknown]
  - Hyperlipidaemia [Unknown]
  - Systemic lupus erythematosus [Unknown]
  - Hypothyroidism [Unknown]
  - Diabetes mellitus [Unknown]
